FAERS Safety Report 5311123-7 (Version None)
Quarter: 2007Q2

REPORT INFORMATION
  Report Type: 
  Country: None (occurrence: None)
  Receive Date: 20070426
  Receipt Date: 20070426
  Transmission Date: 20071010
  Serious: Yes (Hospitalization)
  Sender: FDA-Public Use
  Company Number: None

PATIENT
  Age: 64 Year
  Sex: Male

DRUGS (2)
  1. CLOPIDOGREL [Suspect]
     Indication: STENT PLACEMENT
     Dosage: 75MG QD
  2. ASPIRIN [Suspect]
     Dosage: 81 MG QD

REACTIONS (1)
  - UPPER GASTROINTESTINAL HAEMORRHAGE [None]
